FAERS Safety Report 19745416 (Version 1)
Quarter: 2021Q3

REPORT INFORMATION
  Report Type: Spontaneous
  Country: NL (occurrence: NL)
  Receive Date: 20210825
  Receipt Date: 20210825
  Transmission Date: 20211014
  Serious: Yes (Other)
  Sender: FDA-Public Use
  Company Number: NL-MYLANLABS-2021M1054993

PATIENT
  Sex: Male
  Weight: 65 kg

DRUGS (3)
  1. NAPROXEN. [Suspect]
     Active Substance: NAPROXEN
     Indication: PAIN
     Dosage: 1 X PER DAG 1 STUK
     Dates: start: 20210602, end: 20210607
  2. CETIRIZINE [Concomitant]
     Active Substance: CETIRIZINE HYDROCHLORIDE
     Dosage: TABLET, 10 MG (MILLIGRAM)
  3. LEVOTHYROXINE. [Concomitant]
     Active Substance: LEVOTHYROXINE
     Dosage: 125UG

REACTIONS (3)
  - Dermatitis bullous [Recovering/Resolving]
  - Tongue blistering [Recovered/Resolved]
  - Swollen tongue [Recovered/Resolved]
